FAERS Safety Report 6896393-6 (Version None)
Quarter: 2010Q3

REPORT INFORMATION
  Report Type: 
  Country: None (occurrence: None)
  Receive Date: 20100802
  Receipt Date: 20090202
  Transmission Date: 20110219
  Serious: No
  Sender: FDA-Public Use
  Company Number: US-PFIZER INC-2009166213

PATIENT
  Sex: Female
  Weight: 90.7 kg

DRUGS (9)
  1. NEURONTIN [Suspect]
     Indication: NEURALGIA
     Dosage: UNK
  2. LYRICA [Suspect]
     Indication: NEURALGIA
     Dosage: 25 MG, 3X/DAY
     Dates: start: 20090130
  3. CLONIDINE [Concomitant]
     Dosage: UNK
  4. KLONOPIN [Concomitant]
     Dosage: UNK
  5. OXYCODONE [Concomitant]
     Dosage: UNK
  6. KEFLEX [Concomitant]
     Dosage: UNK
  7. LUNESTA [Concomitant]
     Dosage: UNK
  8. SOMA [Concomitant]
     Dosage: UNK
  9. OPIOIDS [Concomitant]
     Dosage: UNK

REACTIONS (2)
  - DIARRHOEA [None]
  - NEURALGIA [None]
